FAERS Safety Report 17659809 (Version 1)
Quarter: 2020Q2

REPORT INFORMATION
  Report Type: Spontaneous
  Country: US (occurrence: US)
  Receive Date: 20200411
  Receipt Date: 20200411
  Transmission Date: 20200713
  Serious: Yes (Other)
  Sender: FDA-Public Use
  Company Number: None

PATIENT
  Age: 82 Year
  Sex: Male
  Weight: 69 kg

DRUGS (8)
  1. OMEPRAZOLE. [Concomitant]
     Active Substance: OMEPRAZOLE
  2. ISONIAZID. [Concomitant]
     Active Substance: ISONIAZID
     Dates: start: 20190419
  3. SIMVASTATIN. [Concomitant]
     Active Substance: SIMVASTATIN
     Dates: start: 20180910
  4. LISINOPRIL. [Concomitant]
     Active Substance: LISINOPRIL
  5. CRIZOTINIB [Suspect]
     Active Substance: CRIZOTINIB
     Route: 048
     Dates: start: 20200207, end: 20200327
  6. SENNA [Concomitant]
     Active Substance: SENNA LEAF\SENNOSIDES\SENNOSIDES A AND B
  7. HYDROXYCHLOROQUINE [Concomitant]
     Active Substance: HYDROXYCHLOROQUINE
  8. OXYCODONE [Concomitant]
     Active Substance: OXYCODONE

REACTIONS (1)
  - Transaminases increased [None]

NARRATIVE: CASE EVENT DATE: 20200324
